FAERS Safety Report 17059378 (Version 1)
Quarter: 2019Q4

REPORT INFORMATION
  Report Type: Report from Study
  Country: DE (occurrence: DE)
  Receive Date: 20191121
  Receipt Date: 20191121
  Transmission Date: 20200122
  Serious: Yes (Other)
  Sender: FDA-Public Use
  Company Number: DE-JNJFOC-20191119349

PATIENT
  Age: 45 Year
  Sex: Female

DRUGS (1)
  1. REMICADE [Suspect]
     Active Substance: INFLIXIMAB
     Indication: IMMUNE-MEDIATED ENTEROCOLITIS
     Route: 042

REACTIONS (3)
  - Metastases to liver [Unknown]
  - Off label use [Unknown]
  - Product use in unapproved indication [Unknown]
